FAERS Safety Report 12153938 (Version 2)
Quarter: 2016Q2

REPORT INFORMATION
  Report Type: Report from Study
  Country: CN (occurrence: CN)
  Receive Date: 20160307
  Receipt Date: 20160419
  Transmission Date: 20160815
  Serious: Yes (Other)
  Sender: FDA-Public Use
  Company Number: CN-ACCORD-038535

PATIENT

DRUGS (3)
  1. MYCOPHENOLIC ACID. [Concomitant]
     Active Substance: MYCOPHENOLIC ACID
     Indication: RENAL TRANSPLANT
     Dosage: FOR KIDNEY TRANSPLANT AS ANTI-REJECTION SCHEME.
  2. PREDNISONE. [Concomitant]
     Active Substance: PREDNISONE
     Indication: RENAL TRANSPLANT
  3. TACROLIMUS. [Suspect]
     Active Substance: TACROLIMUS
     Indication: RENAL TRANSPLANT
     Dosage: FOR KIDNEY TRANSPLANT AS ANTI-REJECTION SCHEME.

REACTIONS (2)
  - Toxicity to various agents [Unknown]
  - Renal infarct [Not Recovered/Not Resolved]
